FAERS Safety Report 18265839 (Version 1)
Quarter: 2020Q3

REPORT INFORMATION
  Report Type: Spontaneous
  Country: CA (occurrence: CA)
  Receive Date: 20200914
  Receipt Date: 20200914
  Transmission Date: 20201103
  Serious: Yes (Life-Threatening, Hospitalization, Other)
  Sender: FDA-Public Use
  Company Number: CA-HLS-202001476

PATIENT
  Age: 54 Year
  Sex: Male

DRUGS (10)
  1. INVEGA [Concomitant]
     Active Substance: PALIPERIDONE
     Dosage: TABLET (EXTENDED?RELEASE)
     Route: 065
  2. CHAMPIX TABLET [Concomitant]
     Dosage: NOT SPECIFIED
     Route: 065
  3. LOXAPINE. [Concomitant]
     Active Substance: LOXAPINE
     Dosage: NOT SPECIFIED
     Route: 065
  4. BENZTROPINE. [Concomitant]
     Active Substance: BENZTROPINE
     Route: 065
  5. CLOZAPINE. [Suspect]
     Active Substance: CLOZAPINE
     Indication: SCHIZOPHRENIA
     Dosage: 150.0 MILLIGRAM
     Route: 048
  6. VALPROIC ACID. [Concomitant]
     Active Substance: VALPROIC ACID
     Dosage: NOT SPECIFIED
     Route: 065
  7. SENNOSIDES. [Concomitant]
     Active Substance: SENNOSIDES
     Dosage: NOT SPECIFIED
     Route: 065
  8. LORAZEPAM. [Concomitant]
     Active Substance: LORAZEPAM
     Dosage: NOT SPECIFIED
     Route: 065
  9. LITHIUM. [Concomitant]
     Active Substance: LITHIUM
     Dosage: NOT SPECIFIED
     Route: 065
  10. CLOZAPINE. [Suspect]
     Active Substance: CLOZAPINE
     Indication: SCHIZOPHRENIA
     Dosage: 12.5 MILLIGRAM
     Route: 048

REACTIONS (15)
  - Myocarditis [Recovered/Resolved]
  - Respiratory disorder [Recovered/Resolved]
  - Aspartate aminotransferase increased [Recovered/Resolved]
  - Dysphagia [Recovered/Resolved]
  - Dyspnoea [Recovered/Resolved]
  - Sepsis [Recovered/Resolved]
  - Troponin increased [Recovered/Resolved]
  - Depressed level of consciousness [Recovered/Resolved]
  - Alanine aminotransferase increased [Recovered/Resolved]
  - Atelectasis [Recovered/Resolved]
  - Computerised tomogram abnormal [Recovered/Resolved]
  - C-reactive protein abnormal [Recovered/Resolved]
  - Chest X-ray abnormal [Recovered/Resolved]
  - Confusional state [Recovered/Resolved]
  - Electrocardiogram abnormal [Recovered/Resolved]
